FAERS Safety Report 8130061-8 (Version None)
Quarter: 2012Q1

REPORT INFORMATION
  Report Type: 
  Country: None (occurrence: None)
  Receive Date: 20120210
  Receipt Date: 20120130
  Transmission Date: 20120608
  Serious: Yes (Hospitalization, Other)
  Sender: FDA-Public Use
  Company Number: CHPA2012US002423

PATIENT
  Age: 65 Year
  Sex: Male

DRUGS (2)
  1. EXCEDRIN EXTRA STRENGTH TABLETS [Suspect]
     Indication: HEADACHE
     Dosage: 2 DF, A DAY, BUT NOT EVERYDAY
     Route: 048
  2. EXCEDRIN EXTRA STRENGTH TABLETS [Suspect]
     Dosage: 4 - 6 DF, A DAY, BUT NOT EVERYDAY
     Route: 048

REACTIONS (10)
  - ULCER [None]
  - PROSTATE CANCER [None]
  - GLOMERULAR FILTRATION RATE DECREASED [None]
  - OFF LABEL USE [None]
  - EUPHORIC MOOD [None]
  - GASTROINTESTINAL HAEMORRHAGE [None]
  - HAEMOGLOBIN DECREASED [None]
  - RENAL DISORDER [None]
  - ABDOMINAL PAIN UPPER [None]
  - DEPENDENCE [None]
